FAERS Safety Report 6058227-1 (Version None)
Quarter: 2009Q1

REPORT INFORMATION
  Report Type: 
  Country: None (occurrence: None)
  Receive Date: 20090130
  Receipt Date: 20090126
  Transmission Date: 20090719
  Serious: Yes (Other)
  Sender: FDA-Public Use
  Company Number: US-JNJFOC-20090105218

PATIENT
  Sex: Male

DRUGS (1)
  1. RISPERIDONE [Suspect]
     Indication: POST-TRAUMATIC STRESS DISORDER
     Route: 048

REACTIONS (12)
  - AGITATION [None]
  - AKATHISIA [None]
  - ASTHENIA [None]
  - CONDITION AGGRAVATED [None]
  - CRYING [None]
  - DECREASED APPETITE [None]
  - DEPRESSED MOOD [None]
  - DEPRESSION [None]
  - PAIN [None]
  - POOR QUALITY SLEEP [None]
  - SUICIDAL IDEATION [None]
  - WEIGHT DECREASED [None]
